FAERS Safety Report 9199457 (Version 1)
Quarter: 2013Q1

REPORT INFORMATION
  Report Type: Spontaneous
  Country: US (occurrence: US)
  Receive Date: 20130329
  Receipt Date: 20130329
  Transmission Date: 20140127
  Serious: No
  Sender: FDA-Public Use
  Company Number: US-009507513-1303USA012856

PATIENT
  Sex: Female

DRUGS (2)
  1. PEGINTRON [Suspect]
     Indication: HEPATITIS C
     Dosage: 80 MICROGRAM/0.5 ML ONCE WEEKLY
     Dates: start: 20130315
  2. VITAMIN D (UNSPECIFIED) [Concomitant]

REACTIONS (2)
  - Nausea [Unknown]
  - Product quality issue [Unknown]
